FAERS Safety Report 13716821 (Version 1)
Quarter: 2017Q3

REPORT INFORMATION
  Report Type: Spontaneous
  Country: US (occurrence: US)
  Receive Date: 20170705
  Receipt Date: 20170705
  Transmission Date: 20171127
  Serious: No
  Sender: FDA-Public Use
  Company Number: US-LUPIN PHARMACEUTICALS INC.-2017-02119

PATIENT
  Sex: Female
  Weight: 74.83 kg

DRUGS (1)
  1. SIMVASTATIN TABLETS USP, 40 MG [Suspect]
     Active Substance: SIMVASTATIN
     Indication: BLOOD CHOLESTEROL ABNORMAL
     Dosage: 0.5 DF, QD
     Route: 048
     Dates: start: 201105

REACTIONS (3)
  - Arthralgia [Recovered/Resolved]
  - Bone pain [Recovered/Resolved]
  - Pain in extremity [Recovered/Resolved]
